FAERS Safety Report 7957278-7 (Version None)
Quarter: 2011Q4

REPORT INFORMATION
  Report Type: 
  Country: None (occurrence: None)
  Receive Date: 20111201
  Receipt Date: 20111115
  Transmission Date: 20120403
  Serious: Yes (Hospitalization)
  Sender: FDA-Public Use
  Company Number: FK201102737

PATIENT
  Sex: Male

DRUGS (3)
  1. IFOSFAMIDE [Suspect]
     Indication: LEIOMYOSARCOMA METASTATIC
     Dosage: 2 MG, ON DAYS 1 - 4
  2. ETOPOSIDE [Suspect]
     Indication: LEIOMYOSARCOMA METASTATIC
     Dosage: 100 MG, ON DAYS 1 - 4
  3. CISPLATIN [Suspect]
     Indication: LEIOMYOSARCOMA METASTATIC

REACTIONS (4)
  - MYELODYSPLASTIC SYNDROME [None]
  - ACUTE MYELOID LEUKAEMIA [None]
  - NEOPLASM PROGRESSION [None]
  - LEIOMYOSARCOMA [None]
